FAERS Safety Report 25951796 (Version 1)
Quarter: 2025Q4

REPORT INFORMATION
  Report Type: Spontaneous
  Country: US (occurrence: US)
  Receive Date: 20251023
  Receipt Date: 20251023
  Transmission Date: 20260118
  Serious: No
  Sender: TEVA
  Company Number: US-TEVA-VS-3380196

PATIENT

DRUGS (3)
  1. RISPERIDONE [Suspect]
     Active Substance: RISPERIDONE
     Indication: Mental disorder
     Route: 065
     Dates: start: 2013
  2. QUETIAPINE [Suspect]
     Active Substance: QUETIAPINE
     Indication: Mental disorder
     Route: 065
     Dates: start: 2013
  3. LITHIUM [Suspect]
     Active Substance: LITHIUM
     Indication: Mental disorder
     Route: 065
     Dates: start: 2013

REACTIONS (4)
  - Cognitive disorder [Unknown]
  - Adverse drug reaction [Unknown]
  - Mobility decreased [Unknown]
  - Balance disorder [Unknown]
